FAERS Safety Report 9379083 (Version 1)
Quarter: 2013Q2

REPORT INFORMATION
  Report Type: Spontaneous
  Country: US (occurrence: None)
  Receive Date: 20130626
  Receipt Date: 20130626
  Transmission Date: 20140414
  Serious: Yes (Hospitalization)
  Sender: FDA-Public Use
  Company Number: UTC-034175

PATIENT
  Age: 64 Year
  Sex: Male
  Weight: 76.36 kg

DRUGS (1)
  1. REMODULIN [Suspect]
     Indication: PULMONARY ARTERIAL HYPERTENSION
     Dosage: 8.64 UG/KG (0.006 UG/KG,1 IN 1 MIN)
     Route: 058
     Dates: start: 20130612

REACTIONS (5)
  - Vomiting [None]
  - Nausea [None]
  - Diarrhoea [None]
  - Diabetic ketoacidosis [None]
  - Dyspnoea [None]
